FAERS Safety Report 23395734 (Version 1)
Quarter: 2024Q1

REPORT INFORMATION
  Report Type: Spontaneous
  Country: CN (occurrence: None)
  Receive Date: 20240112
  Receipt Date: 20240112
  Transmission Date: 20240410
  Serious: Yes (Hospitalization)
  Sender: FDA-Public Use
  Company Number: 2024A005763

PATIENT
  Age: 18702 Day
  Sex: Male
  Weight: 74 kg

DRUGS (1)
  1. DAPAGLIFLOZIN [Suspect]
     Active Substance: DAPAGLIFLOZIN
     Indication: Blood glucose increased
     Route: 048
     Dates: start: 20231121, end: 20231213

REACTIONS (7)
  - Blood ketone body increased [Recovering/Resolving]
  - Supraventricular extrasystoles [Unknown]
  - Fatigue [Unknown]
  - Muscular weakness [Unknown]
  - Chest discomfort [Unknown]
  - Palpitations [Unknown]
  - Diabetes mellitus inadequate control [Unknown]

NARRATIVE: CASE EVENT DATE: 20231212
